FAERS Safety Report 23277745 (Version 2)
Quarter: 2024Q2

REPORT INFORMATION
  Report Type: Spontaneous
  Country: TW (occurrence: TW)
  Receive Date: 20231208
  Receipt Date: 20240524
  Transmission Date: 20240716
  Serious: Yes (Life-Threatening, Other)
  Sender: FDA-Public Use
  Company Number: TW-SUN PHARMACEUTICAL INDUSTRIES LTD-2023R1-422587

PATIENT
  Sex: Male
  Weight: 0.566 kg

DRUGS (1)
  1. INDOMETHACIN [Suspect]
     Active Substance: INDOMETHACIN
     Indication: Product used for unknown indication
     Dosage: 0.2 MILLIGRAM/KILOGRAM
     Route: 065

REACTIONS (1)
  - Gastric haemorrhage [Recovered/Resolved]
